FAERS Safety Report 20997533 (Version 1)
Quarter: 2022Q2

REPORT INFORMATION
  Report Type: Spontaneous
  Country: AU (occurrence: AU)
  Receive Date: 20220623
  Receipt Date: 20220623
  Transmission Date: 20220720
  Serious: Yes (Other)
  Sender: FDA-Public Use
  Company Number: AU-LUPIN PHARMACEUTICALS INC.-2022-08924

PATIENT
  Age: 24 Year
  Sex: Male

DRUGS (12)
  1. HYDROXYCHLOROQUINE [Suspect]
     Active Substance: HYDROXYCHLOROQUINE
     Indication: Cheilitis granulomatosa
     Dosage: UNK
     Route: 065
  2. MYCOPHENOLATE MOFETIL [Suspect]
     Active Substance: MYCOPHENOLATE MOFETIL
     Indication: Cheilitis granulomatosa
     Dosage: UNK
     Route: 065
  3. DAPSONE [Suspect]
     Active Substance: DAPSONE
     Indication: Cheilitis granulomatosa
     Dosage: UNK
     Route: 065
  4. TACROLIMUS [Suspect]
     Active Substance: TACROLIMUS
     Indication: Cheilitis granulomatosa
     Dosage: UNK
     Route: 061
  5. COLCHICINE [Suspect]
     Active Substance: COLCHICINE
     Indication: Cheilitis granulomatosa
     Dosage: UNK
     Route: 065
  6. ITRACONAZOLE [Suspect]
     Active Substance: ITRACONAZOLE
     Indication: Cheilitis granulomatosa
     Dosage: UNK
     Route: 065
  7. ACITRETIN [Suspect]
     Active Substance: ACITRETIN
     Indication: Cheilitis granulomatosa
     Dosage: UNK
     Route: 065
  8. CYCLOSPORINE [Suspect]
     Active Substance: CYCLOSPORINE
     Indication: Cheilitis granulomatosa
     Dosage: UNK
     Route: 065
  9. METHOTREXATE [Suspect]
     Active Substance: METHOTREXATE
     Indication: Cheilitis granulomatosa
     Dosage: UNK
     Route: 065
  10. AZATHIOPRINE [Suspect]
     Active Substance: AZATHIOPRINE
     Indication: Cheilitis granulomatosa
     Dosage: UNK
     Route: 065
  11. PREDNISOLONE [Suspect]
     Active Substance: PREDNISOLONE
     Indication: Cheilitis granulomatosa
     Dosage: 0.5 MILLIGRAM/KILOGRAM
     Route: 065
  12. TILDRAKIZUMAB [Suspect]
     Active Substance: TILDRAKIZUMAB
     Indication: Cheilitis granulomatosa
     Dosage: 100 MG 12 WEEKLY AFTER INDUCTION GIVEN AT WEEKS 0 AND 4
     Route: 065

REACTIONS (2)
  - Drug ineffective for unapproved indication [Unknown]
  - Off label use [Unknown]
